FAERS Safety Report 8969772 (Version 1)
Quarter: 2012Q4

REPORT INFORMATION
  Report Type: 
  Country: US (occurrence: US)
  Receive Date: 20121218
  Receipt Date: 20121218
  Transmission Date: 20130627
  Serious: No
  Sender: FDA-Public Use
  Company Number: US-BRISTOL-MYERS SQUIBB COMPANY-16245763

PATIENT
  Age: 22 Year
  Sex: Male

DRUGS (3)
  1. ABILIFY [Suspect]
     Indication: BIPOLAR I DISORDER
     Dosage: Increased to 10mg.
     Route: 048
     Dates: start: 20110426, end: 20110531
  2. ZYPREXA [Concomitant]
  3. VYVANSE [Concomitant]

REACTIONS (1)
  - Extrapyramidal disorder [Recovered/Resolved]
